FAERS Safety Report 21077756 (Version 6)
Quarter: 2024Q4

REPORT INFORMATION
  Report Type: Spontaneous
  Country: US (occurrence: US)
  Receive Date: 20220713
  Receipt Date: 20241227
  Transmission Date: 20250114
  Serious: No
  Sender: PFIZER
  Company Number: US-PFIZER INC-PV202200021604

PATIENT
  Age: 72 Year
  Sex: Female

DRUGS (2)
  1. IBRANCE [Suspect]
     Active Substance: PALBOCICLIB
     Dosage: 125 MG, CYCLIC (125 MG BY MOUTH 1 (ONE) TIME EACH DAY FOR 21 DAYS; DAYS 1-21 OF EACH 28-DAY CYCLE)
     Route: 048
     Dates: start: 20220725
  2. IBRANCE [Suspect]
     Active Substance: PALBOCICLIB
     Dosage: 125 MG, CYCLIC (TAKE ONE TAB DAILY FOR 21 DAYS, THEN TWO WEEKS OFF, EVERY 5 WEEKS)
     Route: 048

REACTIONS (2)
  - Nervousness [Unknown]
  - Malaise [Unknown]

NARRATIVE: CASE EVENT DATE: 20220919
